FAERS Safety Report 9242702 (Version 2)
Quarter: 2013Q3

REPORT INFORMATION
  Report Type: Spontaneous
  Country: CA (occurrence: CA)
  Receive Date: 20130419
  Receipt Date: 20130828
  Transmission Date: 20140515
  Serious: Yes (Death)
  Sender: FDA-Public Use
  Company Number: CA-JNJFOC-20130410792

PATIENT
  Sex: 0

DRUGS (7)
  1. DOXORUBICIN HYDROCHLORIDE (DOXIL) [Suspect]
     Indication: PLASMA CELL MYELOMA
     Dosage: 4 CYCLES DURING INDUCTION
     Route: 042
  2. BORTEZOMIB [Suspect]
     Indication: PLASMA CELL MYELOMA
     Dosage: 4 CYCLES DURING INDUCTION
     Route: 065
  3. DEXAMETHASONE [Suspect]
     Indication: PLASMA CELL MYELOMA
     Dosage: 4 CYCLES DURING INDUCTION
     Route: 065
  4. CYCLOPHOSPHAMIDE [Suspect]
     Indication: PLASMA CELL MYELOMA
     Dosage: 8 CYCLES; POST-INDUCTION THERAPY
     Route: 048
  5. BORTEZOMIB [Suspect]
     Indication: PLASMA CELL MYELOMA
     Dosage: 8 CYCLES; POST-INDUCTION THERAPY ON DAYS DAYS 1,8,15
     Route: 065
  6. PREDNISONE [Suspect]
     Indication: PLASMA CELL MYELOMA
     Dosage: 8 CYCLES; POST-INDUCTION THERAPY EVERY 2 DAYS
     Route: 065
  7. DEXAMETHASONE [Suspect]
     Indication: PLASMA CELL MYELOMA
     Dosage: MAINTENANCE THERAPY
     Route: 065

REACTIONS (4)
  - Disease progression [Fatal]
  - Adverse event [Unknown]
  - Disease progression [Unknown]
  - Neuropathy peripheral [Unknown]
